FAERS Safety Report 7510770-1 (Version None)
Quarter: 2011Q2

REPORT INFORMATION
  Report Type: 
  Country: None (occurrence: None)
  Receive Date: 20110530
  Receipt Date: 20110519
  Transmission Date: 20111010
  Serious: Yes (Other)
  Sender: FDA-Public Use
  Company Number: PHHY2011US40278

PATIENT
  Sex: Female
  Weight: 59.093 kg

DRUGS (5)
  1. GILENYA [Suspect]
     Indication: RELAPSING-REMITTING MULTIPLE SCLEROSIS
     Dosage: 0.5 MG, QD
     Route: 048
     Dates: start: 20110511
  2. GABAPENTIN [Concomitant]
     Indication: DYSAESTHESIA
     Dosage: 300 MG, QD/PRN
     Route: 048
  3. AMITRIPTYLINE HCL [Concomitant]
     Indication: DYSAESTHESIA
     Dosage: 10 MG, DAILY
     Route: 048
  4. DEPO-ESTRADIOL [Concomitant]
     Dosage: UNK UKN, UNK
  5. GILENYA [Suspect]
     Dosage: 0.5 MG, QD
     Route: 048
     Dates: start: 20110512

REACTIONS (7)
  - DIZZINESS [None]
  - HEART RATE DECREASED [None]
  - HEADACHE [None]
  - PRESYNCOPE [None]
  - DYSPNOEA [None]
  - BLOOD PRESSURE DECREASED [None]
  - CHEST DISCOMFORT [None]
